FAERS Safety Report 18267330 (Version 1)
Quarter: 2020Q3

REPORT INFORMATION
  Report Type: Spontaneous
  Country: US (occurrence: US)
  Receive Date: 20200915
  Receipt Date: 20200915
  Transmission Date: 20201103
  Serious: Yes (Hospitalization)
  Sender: FDA-Public Use
  Company Number: None

PATIENT
  Age: 82 Year
  Sex: Male
  Weight: 65.7 kg

DRUGS (12)
  1. GAMUNEX?C [Suspect]
     Active Substance: HUMAN IMMUNOGLOBULIN G
     Indication: SELECTIVE IGG SUBCLASS DEFICIENCY
     Dosage: ?          OTHER FREQUENCY:Q4WKS;?
     Route: 042
     Dates: start: 20200319, end: 20200319
  2. XARELTO [Concomitant]
     Active Substance: RIVAROXABAN
     Dates: start: 20190712
  3. TAZTIA XT 120MG [Concomitant]
     Dates: start: 20150706
  4. ALBUTEROL SULFATE 2.5MG/3ML [Concomitant]
     Dates: start: 20180712
  5. PREDNISONE 5MG [Concomitant]
     Active Substance: PREDNISONE
     Dates: start: 20151010
  6. FUROSEMIDE 40MG [Concomitant]
     Active Substance: FUROSEMIDE
     Dates: start: 20150706
  7. KLOR?CON M10 [Concomitant]
     Active Substance: POTASSIUM CHLORIDE
     Dates: start: 20150706
  8. SYMBICORT 160?4.5MG [Concomitant]
     Dates: start: 20170217
  9. PROAIR HFA [Concomitant]
     Active Substance: ALBUTEROL SULFATE
     Dates: start: 20150706
  10. SPIRIVA HANDIHALER 18MCG [Concomitant]
     Dates: start: 20160526
  11. ATORVASTATIN CALCIUM 20MG [Concomitant]
     Dates: start: 20150706
  12. THEOPHYLLINE ER 300MG [Concomitant]
     Dates: start: 20150706

REACTIONS (4)
  - Pneumonia [None]
  - Nasal congestion [None]
  - Dyspnoea [None]
  - Sepsis [None]

NARRATIVE: CASE EVENT DATE: 20200423
